FAERS Safety Report 5967724-6 (Version None)
Quarter: 2008Q4

REPORT INFORMATION
  Report Type: 
  Country: None (occurrence: None)
  Receive Date: 20081126
  Receipt Date: 20081121
  Transmission Date: 20090506
  Serious: Yes (Hospitalization)
  Sender: FDA-Public Use
  Company Number: US-JNJFOC-20081105159

PATIENT
  Age: 2 Year
  Sex: Male

DRUGS (4)
  1. ACETAMINOPHEN [Suspect]
     Route: 048
  2. ACETAMINOPHEN [Suspect]
     Indication: ANTIPYRESIS
     Dosage: 10 MG/KG DOSE EVERY 4 HOURS (CUMULATIVE DOSE 60 MG/KG OVER 24 HOURS)
     Route: 048
  3. LORAZEPAM [Concomitant]
     Indication: CONVULSION
  4. CEFOTAXIME SODIUM [Concomitant]
     Indication: URINARY TRACT INFECTION

REACTIONS (2)
  - DRUG TOXICITY [None]
  - HEPATIC NECROSIS [None]
